FAERS Safety Report 9831884 (Version 1)
Quarter: 2014Q1

REPORT INFORMATION
  Report Type: Spontaneous
  Country: US (occurrence: US)
  Receive Date: 20140121
  Receipt Date: 20140121
  Transmission Date: 20141002
  Serious: No
  Sender: FDA-Public Use
  Company Number: US-PFIZER INC-2014015092

PATIENT
  Sex: Female

DRUGS (2)
  1. LYRICA [Suspect]
     Dosage: 300 MG, 2X/DAY
  2. LAMICTAL [Suspect]
     Dosage: TWICE DAILY

REACTIONS (2)
  - Fatigue [Unknown]
  - Somnolence [Unknown]
